FAERS Safety Report 13651085 (Version 1)
Quarter: 2017Q2

REPORT INFORMATION
  Report Type: Spontaneous
  Country: IN (occurrence: IN)
  Receive Date: 20170614
  Receipt Date: 20170614
  Transmission Date: 20170830
  Serious: Yes (Hospitalization)
  Sender: FDA-Public Use
  Company Number: IN-ASTELLAS-2017US023015

PATIENT
  Age: 35 Year
  Sex: Male

DRUGS (7)
  1. WYSOLONE [Concomitant]
     Active Substance: PREDNISOLONE
     Indication: RENAL AND PANCREAS TRANSPLANT
     Dosage: 30 MG ON DAY 3, UNKNOWN FREQ.
     Route: 065
  2. METHYLPREDNISOLONE. [Concomitant]
     Active Substance: METHYLPREDNISOLONE
     Dosage: 125 MG ON DAY 1 AND 80 MG ON DAY 2, UNKNOWN FREQ.
     Route: 065
  3. METHYLPREDNISOLONE. [Concomitant]
     Active Substance: METHYLPREDNISOLONE
     Indication: RENAL AND PANCREAS TRANSPLANT
     Dosage: 7 MG/BODY WEIGHT BOLUS AT THE START OF IMPLANT OF PANCREAS, UNKNOWN FREQ.
     Route: 065
  4. BASILIXIMAB [Concomitant]
     Active Substance: BASILIXIMAB
     Indication: RENAL AND PANCREAS TRANSPLANT
     Dosage: 20 MG, UNKNOWN FREQ. (FIRST DOSE-20 MG WITHIN 2 HOURS OF IMPLANT)
     Route: 065
  5. BASILIXIMAB [Concomitant]
     Active Substance: BASILIXIMAB
     Indication: RENAL AND PANCREAS TRANSPLANT
     Dosage: 20 MG, UNKNOWN FREQ. (SECOND DOSE -20 MG ON 4TH DAY)
     Route: 065
  6. TACROLIMUS. [Suspect]
     Active Substance: TACROLIMUS
     Indication: RENAL AND PANCREAS TRANSPLANT
     Dosage: UNK UNK, UNKNOWN FREQ.
     Route: 065
  7. MYCOPHENOLATE MOFETIL. [Concomitant]
     Active Substance: MYCOPHENOLATE MOFETIL
     Indication: RENAL AND PANCREAS TRANSPLANT
     Route: 065

REACTIONS (1)
  - Vascular pseudoaneurysm [Unknown]
